FAERS Safety Report 19026918 (Version 5)
Quarter: 2021Q4

REPORT INFORMATION
  Report Type: Report from Study
  Country: US (occurrence: US)
  Receive Date: 20210318
  Receipt Date: 20211006
  Transmission Date: 20220303
  Serious: No
  Sender: FDA-Public Use
  Company Number: NVSC2021US060285

PATIENT
  Age: 74 Year
  Sex: Female

DRUGS (2)
  1. ENTRESTO [Suspect]
     Active Substance: SACUBITRIL\VALSARTAN
     Indication: Cardiac failure
     Dosage: 1 DF, BID (97/103 MG)
     Route: 048
     Dates: start: 202101
  2. ENTRESTO [Suspect]
     Active Substance: SACUBITRIL\VALSARTAN
     Dosage: 2 DF, BID
     Route: 048

REACTIONS (11)
  - Weight increased [Unknown]
  - Palpitations [Unknown]
  - Heart rate irregular [Unknown]
  - Nervousness [Unknown]
  - Fall [Recovering/Resolving]
  - Limb injury [Unknown]
  - Weight decreased [Unknown]
  - Umbilical hernia [Unknown]
  - Cardiac disorder [Unknown]
  - Incorrect dose administered [Unknown]
  - Decreased appetite [Unknown]

NARRATIVE: CASE EVENT DATE: 20210514
